FAERS Safety Report 15551280 (Version 1)
Quarter: 2018Q4

REPORT INFORMATION
  Report Type: Spontaneous
  Country: US (occurrence: US)
  Receive Date: 20181025
  Receipt Date: 20181025
  Transmission Date: 20190205
  Serious: Yes (Hospitalization)
  Sender: FDA-Public Use
  Company Number: None

PATIENT
  Age: 75 Year
  Sex: Male

DRUGS (15)
  1. WARFARIN [Concomitant]
     Active Substance: WARFARIN
  2. POTASSIUM [Concomitant]
     Active Substance: POTASSIUM
  3. LYRICA [Concomitant]
     Active Substance: PREGABALIN
  4. GLIMEPIRIDE. [Concomitant]
     Active Substance: GLIMEPIRIDE
  5. LIPITOR [Concomitant]
     Active Substance: ATORVASTATIN CALCIUM
  6. METOPROLOL TARTRATE. [Concomitant]
     Active Substance: METOPROLOL TARTRATE
  7. SPIRIVA [Concomitant]
     Active Substance: TIOTROPIUM BROMIDE MONOHYDRATE
  8. REVATIO [Suspect]
     Active Substance: SILDENAFIL CITRATE
     Indication: PULMONARY ARTERIAL HYPERTENSION
     Route: 048
     Dates: start: 20161210
  9. MAGNESIUM [Concomitant]
     Active Substance: MAGNESIUM
  10. FENOFIBRATE. [Concomitant]
     Active Substance: FENOFIBRATE
  11. DILTIAZEM. [Concomitant]
     Active Substance: DILTIAZEM
  12. TYLENOL [Concomitant]
     Active Substance: ACETAMINOPHEN
  13. VASCEPA [Concomitant]
     Active Substance: ICOSAPENT ETHYL
  14. FUROSEMIDE. [Concomitant]
     Active Substance: FUROSEMIDE
  15. TRACLEER [Concomitant]
     Active Substance: BOSENTAN

REACTIONS (1)
  - Oxygen saturation decreased [None]

NARRATIVE: CASE EVENT DATE: 20181011
